FAERS Safety Report 10357936 (Version 2)
Quarter: 2014Q4

REPORT INFORMATION
  Report Type: Report from Study
  Country: FR (occurrence: FR)
  Receive Date: 20140801
  Receipt Date: 20141110
  Transmission Date: 20150528
  Serious: Yes (Hospitalization)
  Sender: FDA-Public Use
  Company Number: FR-GLAXOSMITHKLINE-B1020008A

PATIENT
  Age: 65 Year
  Sex: Female

DRUGS (2)
  1. BKM120 [Suspect]
     Active Substance: BUPARLISIB HYDROCHLORIDE
     Indication: BREAST CANCER RECURRENT
     Dosage: 80 MG, QD
     Route: 048
     Dates: start: 20140626, end: 20140726
  2. TYKERB [Suspect]
     Active Substance: LAPATINIB DITOSYLATE
     Indication: BREAST CANCER RECURRENT
     Dosage: 1250 MG, QD
     Route: 048
     Dates: start: 20140626, end: 20140801

REACTIONS (1)
  - Hyperglycaemia [Recovering/Resolving]

NARRATIVE: CASE EVENT DATE: 20140726
